FAERS Safety Report 6788246-9 (Version None)
Quarter: 2010Q2

REPORT INFORMATION
  Report Type: 
  Country: None (occurrence: None)
  Receive Date: 20100623
  Receipt Date: 20080315
  Transmission Date: 20101027
  Serious: No
  Sender: FDA-Public Use
  Company Number: US-PFIZER INC-2008001593

PATIENT
  Sex: Female
  Weight: 5.44 kg

DRUGS (4)
  1. GENOTROPIN [Suspect]
     Indication: BLOOD GROWTH HORMONE ABNORMAL
     Dates: start: 20071231
  2. SYNTHROID [Concomitant]
     Indication: THYROID DISORDER
     Route: 048
  3. KEPPRA [Concomitant]
     Route: 048
  4. DESMOPRESSIN ACETATE [Concomitant]
     Route: 045

REACTIONS (2)
  - RASH ERYTHEMATOUS [None]
  - VIRAL RASH [None]
